FAERS Safety Report 23426484 (Version 1)
Quarter: 2024Q1

REPORT INFORMATION
  Report Type: Spontaneous
  Country: FR (occurrence: FR)
  Receive Date: 20240122
  Receipt Date: 20240122
  Transmission Date: 20240410
  Serious: Yes (Hospitalization, Other)
  Sender: FDA-Public Use
  Company Number: FR-AFSSAPS-AVBX2024000003

PATIENT
  Age: 24 Year
  Sex: Male

DRUGS (6)
  1. VENLAFAXINE [Suspect]
     Active Substance: VENLAFAXINE HYDROCHLORIDE
     Indication: Product used for unknown indication
     Dosage: UNK 3X75MG/JOURM?SUSAGE
     Route: 048
     Dates: start: 2022
  2. OXAZEPAM [Suspect]
     Active Substance: OXAZEPAM
     Indication: Product used for unknown indication
     Dosage: 150 MILLIGRAM
     Route: 048
     Dates: start: 2022
  3. COCAINE [Suspect]
     Active Substance: COCAINE
     Indication: Product used for unknown indication
     Dosage: 8 GRAM 1 ? 2 FOIS PAR SEMAINE
     Route: 045
     Dates: start: 2018
  4. CODEINE [Suspect]
     Active Substance: CODEINE
     Indication: Product used for unknown indication
     Dosage: UNK
     Route: 048
     Dates: start: 2022
  5. LORMETAZEPAM [Suspect]
     Active Substance: LORMETAZEPAM
     Indication: Product used for unknown indication
     Dosage: 8 MILLIGRAM M?SUSAGE, PREND 4CP AU LIEU DE 1 PAR JOUR
     Route: 048
     Dates: start: 2022
  6. TRIMEPRAZINE [Suspect]
     Active Substance: TRIMEPRAZINE
     Indication: Product used for unknown indication
     Dosage: 200 DROP, ONCE A DAY INSTEAD OF 50 DROPSMISUSE
     Route: 048
     Dates: start: 2022

REACTIONS (1)
  - Drug dependence [Recovering/Resolving]
